FAERS Safety Report 5863372-7 (Version None)
Quarter: 2008Q3

REPORT INFORMATION
  Report Type: 
  Country: None (occurrence: None)
  Receive Date: 20080828
  Receipt Date: 20080820
  Transmission Date: 20090109
  Serious: Yes (Other)
  Sender: FDA-Public Use
  Company Number: PHHY2008DE10675

PATIENT
  Sex: Female
  Weight: 72 kg

DRUGS (2)
  1. VOLTAREN [Suspect]
     Indication: JOINT SWELLING
     Dosage: 2 DF/DAY
     Route: 048
     Dates: start: 20080519, end: 20080601
  2. VOLTAREN [Suspect]
     Indication: JOINT SWELLING
     Dosage: UNK
     Route: 061
     Dates: start: 20080519, end: 20080601

REACTIONS (6)
  - BLOOD PRESSURE INCREASED [None]
  - DYSPNOEA [None]
  - OEDEMA [None]
  - PETECHIAE [None]
  - RESTLESSNESS [None]
  - TREMOR [None]
